FAERS Safety Report 7483336-X (Version None)
Quarter: 2011Q2

REPORT INFORMATION
  Report Type: 
  Country: None (occurrence: None)
  Receive Date: 20110517
  Receipt Date: 20110406
  Transmission Date: 20111010
  Serious: Yes (Hospitalization, Other)
  Sender: FDA-Public Use
  Company Number: US-BAYER-201025559NA

PATIENT
  Age: 25 Year
  Sex: Female
  Weight: 99.773 kg

DRUGS (5)
  1. YASMIN [Suspect]
     Dosage: UNK
     Dates: start: 20061002, end: 20090619
  2. YASMIN [Suspect]
     Indication: CONTRACEPTION
     Dosage: UNK UNK, UNK
     Route: 048
     Dates: start: 20030709, end: 20040910
  3. YASMIN [Suspect]
     Dosage: UNK
     Dates: start: 20090522, end: 20091024
  4. HYDROCODONE [HYDROCODONE] [Concomitant]
     Indication: ABDOMINAL PAIN
     Dosage: UNK
     Dates: start: 20090301
  5. FLUOXETINE [Concomitant]
     Indication: DEPRESSION
     Dosage: 1 PILL DAILY

REACTIONS (4)
  - CHOLELITHIASIS [None]
  - GALLBLADDER INJURY [None]
  - ABDOMINAL PAIN [None]
  - CHOLECYSTITIS CHRONIC [None]
